FAERS Safety Report 25655165 (Version 1)
Quarter: 2025Q3

REPORT INFORMATION
  Report Type: Spontaneous
  Country: US (occurrence: None)
  Receive Date: 20250806
  Receipt Date: 20250806
  Transmission Date: 20251020
  Serious: Yes (Other)
  Sender: FDA-CTU
  Company Number: None

PATIENT
  Age: 32 Year
  Sex: Male
  Weight: 67.5 kg

DRUGS (1)
  1. QULIPTA [Suspect]
     Active Substance: ATOGEPANT

REACTIONS (1)
  - Libido decreased [None]

NARRATIVE: CASE EVENT DATE: 20250801
